FAERS Safety Report 19180335 (Version 3)
Quarter: 2021Q3

REPORT INFORMATION
  Report Type: Spontaneous
  Country: US (occurrence: US)
  Receive Date: 20210426
  Receipt Date: 20210811
  Transmission Date: 20211014
  Serious: No
  Sender: FDA-Public Use
  Company Number: US-PFIZER INC-2021350526

PATIENT
  Age: 72 Year
  Sex: Female

DRUGS (9)
  1. TOLTERODINE [Concomitant]
     Active Substance: TOLTERODINE
  2. LISINOPRIL. [Concomitant]
     Active Substance: LISINOPRIL
  3. ANASTROZOLE. [Concomitant]
     Active Substance: ANASTROZOLE
  4. IBRANCE [Suspect]
     Active Substance: PALBOCICLIB
     Dosage: 75 MG, DAILY (FOR 21 DAYS AND OFF FOR 7 DAYS)
     Dates: start: 20200427
  5. CYANOCOBALAMIN. [Concomitant]
     Active Substance: CYANOCOBALAMIN
  6. ESCITALOPRAM [Concomitant]
     Active Substance: ESCITALOPRAM OXALATE
  7. ATORVASTATIN [Concomitant]
     Active Substance: ATORVASTATIN
  8. AMLODIPINE [Concomitant]
     Active Substance: AMLODIPINE BESYLATE
  9. IBRANCE [Suspect]
     Active Substance: PALBOCICLIB
     Indication: BREAST CANCER FEMALE
     Dosage: 75 MG, CYCLIC (QD (ONCE A DAY) X 21 DAYS)
     Dates: start: 20191106

REACTIONS (6)
  - Arthralgia [Unknown]
  - White blood cell count decreased [Unknown]
  - Alopecia [Not Recovered/Not Resolved]
  - Dyspnoea [Unknown]
  - Fatigue [Unknown]
  - Cough [Unknown]
